FAERS Safety Report 9521018 (Version 2)
Quarter: 2013Q4

REPORT INFORMATION
  Report Type: Spontaneous
  Country: DE (occurrence: DE)
  Receive Date: 20130913
  Receipt Date: 20131113
  Transmission Date: 20140711
  Serious: Yes (Other)
  Sender: FDA-Public Use
  Company Number: DE-MERCK-1309DEU004609

PATIENT
  Age: 55 Year
  Sex: Female

DRUGS (2)
  1. MK-0000 [Suspect]
     Dosage: UNK
  2. SIMVASTATIN [Suspect]
     Dosage: 10 MG, QD
     Route: 048
     Dates: start: 200202

REACTIONS (3)
  - Breast cancer [Unknown]
  - Hypertension [Unknown]
  - Hypercholesterolaemia [Unknown]
